FAERS Safety Report 9775582 (Version 2)
Quarter: 2014Q1

REPORT INFORMATION
  Report Type: Spontaneous
  Country: US (occurrence: US)
  Receive Date: 20131220
  Receipt Date: 20140318
  Transmission Date: 20141002
  Serious: No
  Sender: FDA-Public Use
  Company Number: US-GALDERMA-US13003735

PATIENT
  Age: 41 Year
  Sex: 0

DRUGS (7)
  1. MIRVASO (BRIMONIDINE) TOPICAL GEL, 0.33% [Suspect]
     Dosage: 0.33%
     Route: 061
     Dates: start: 20131015
  2. SPIRONOLACTONE [Concomitant]
     Route: 048
  3. CERAVE HYDRATING CLEANSER [Concomitant]
     Route: 061
  4. AVENE EXTREME TOLERANCE LOTION [Concomitant]
     Route: 061
  5. AVENE REDNESS RELIEF SPF [Concomitant]
     Route: 061
  6. AVENE SPRING WATER [Concomitant]
     Route: 061
  7. ACZONE [Concomitant]
     Route: 061

REACTIONS (2)
  - Condition aggravated [Recovered/Resolved]
  - Pain of skin [Recovered/Resolved]
